FAERS Safety Report 8489382-1 (Version None)
Quarter: 2012Q2

REPORT INFORMATION
  Report Type: 
  Country: None (occurrence: None)
  Receive Date: 20120628
  Receipt Date: 20120628
  Transmission Date: 20120825
  Serious: No
  Sender: FDA-Public Use
  Company Number: None

PATIENT
  Age: 55 Year
  Sex: Female
  Weight: 81.6475 kg

DRUGS (1)
  1. HYDROMORPHONE HYDROCHLORIDE [Suspect]
     Indication: NUCLEAR MAGNETIC RESONANCE IMAGING
     Dosage: 4 TIMES A DAY 4MG TAB 120 1 TABLET PO
     Route: 048
     Dates: start: 20120609, end: 20120612

REACTIONS (8)
  - PRODUCT QUALITY ISSUE [None]
  - HEADACHE [None]
  - CHEST PAIN [None]
  - ANXIETY [None]
  - MALAISE [None]
  - DYSPNOEA [None]
  - HYPERHIDROSIS [None]
  - ASTHMA [None]
